FAERS Safety Report 23441919 (Version 8)
Quarter: 2025Q4

REPORT INFORMATION
  Report Type: Report from Study
  Country: CA (occurrence: CA)
  Receive Date: 20240125
  Receipt Date: 20251111
  Transmission Date: 20260118
  Serious: Yes (Hospitalization, Disabling, Other)
  Sender: BIOCON
  Company Number: CA-MYLANLABS-2023M1104949

PATIENT

DRUGS (5)
  1. HULIO [Suspect]
     Active Substance: ADALIMUMAB-FKJP
     Indication: Rheumatoid arthritis
     Dosage: 40 MILLIGRAM, BIWEEKLY
     Route: 058
     Dates: start: 20231002
  2. HULIO [Suspect]
     Active Substance: ADALIMUMAB-FKJP
     Dosage: 40 MILLIGRAM, Q2W
     Route: 058
  3. HULIO [Suspect]
     Active Substance: ADALIMUMAB-FKJP
     Dosage: UNK
     Route: 065
  4. HULIO [Suspect]
     Active Substance: ADALIMUMAB-FKJP
     Dosage: 40 MILLIGRAM, Q2W
     Route: 058
  5. HUMIRA [Concomitant]
     Active Substance: ADALIMUMAB
     Indication: Product used for unknown indication
     Dosage: UNK
     Route: 065

REACTIONS (22)
  - Erythema [Recovered/Resolved]
  - Hospitalisation [Unknown]
  - Joint injury [Unknown]
  - Fall [Unknown]
  - Peripheral swelling [Recovered/Resolved]
  - Loss of personal independence in daily activities [Unknown]
  - Rheumatoid arthritis [Unknown]
  - Pain in extremity [Recovered/Resolved]
  - Rash [Unknown]
  - Confusional state [Unknown]
  - Weight decreased [Unknown]
  - Body height decreased [Unknown]
  - Hand deformity [Not Recovered/Not Resolved]
  - Gait disturbance [Unknown]
  - Arthralgia [Unknown]
  - Arthritis [Unknown]
  - Gastrointestinal pain [Unknown]
  - Product dose omission issue [Unknown]
  - Drug ineffective [Unknown]
  - Needle issue [Unknown]
  - Syringe issue [Unknown]
  - Device issue [Unknown]

NARRATIVE: CASE EVENT DATE: 20231201
